FAERS Safety Report 5485923-7 (Version None)
Quarter: 2007Q4

REPORT INFORMATION
  Report Type: 
  Country: None (occurrence: None)
  Receive Date: 20071015
  Receipt Date: 20071003
  Transmission Date: 20080405
  Serious: Yes (Other)
  Sender: FDA-Public Use
  Company Number: US-SHR-US-2007-011017

PATIENT

DRUGS (2)
  1. MAGNEVIST [Suspect]
     Dosage: UNK, 1 DOSE
  2. OMNISCAN [Suspect]
     Dosage: UNK, 1 DOSE

REACTIONS (1)
  - NEPHROGENIC SYSTEMIC FIBROSIS [None]
